FAERS Safety Report 19823434 (Version 1)
Quarter: 2021Q3

REPORT INFORMATION
  Report Type: Spontaneous
  Country: NL (occurrence: NL)
  Receive Date: 20210913
  Receipt Date: 20210913
  Transmission Date: 20211014
  Serious: Yes (Other)
  Sender: FDA-Public Use
  Company Number: NL-UCBSA-2021042084

PATIENT
  Sex: Female

DRUGS (2)
  1. BRIVIACT [Suspect]
     Active Substance: BRIVARACETAM
     Dosage: 20 DROP, 2X/DAY (BID)
  2. BRIVIACT [Suspect]
     Active Substance: BRIVARACETAM
     Indication: PRODUCT USED FOR UNKNOWN INDICATION
     Dosage: 20 DROP, 3X/DAY (TID)

REACTIONS (12)
  - Off label use [Unknown]
  - Drug ineffective [Unknown]
  - Epilepsy [Unknown]
  - Decreased appetite [Unknown]
  - Confusional state [Unknown]
  - Product quality issue [Unknown]
  - Photopsia [Unknown]
  - Fatigue [Unknown]
  - Abdominal pain [Unknown]
  - Memory impairment [Unknown]
  - Overdose [Unknown]
  - Nausea [Unknown]
